FAERS Safety Report 7585404-0 (Version None)
Quarter: 2011Q2

REPORT INFORMATION
  Report Type: 
  Country: None (occurrence: None)
  Receive Date: 20110624
  Receipt Date: 20110608
  Transmission Date: 20111010
  Serious: Yes (Other)
  Sender: FDA-Public Use
  Company Number: 2011PL000084

PATIENT
  Age: 54 Year
  Sex: Male

DRUGS (1)
  1. PROLEUKIN [Suspect]
     Indication: METASTATIC MALIGNANT MELANOMA

REACTIONS (17)
  - CHILLS [None]
  - PYREXIA [None]
  - FATIGUE [None]
  - ASPARTATE AMINOTRANSFERASE INCREASED [None]
  - CORONARY ARTERY OCCLUSION [None]
  - MYOCARDIAL REPERFUSION INJURY [None]
  - TACHYCARDIA [None]
  - MYOCARDITIS [None]
  - NAUSEA [None]
  - DYSPNOEA [None]
  - ALANINE AMINOTRANSFERASE INCREASED [None]
  - BLOOD ALKALINE PHOSPHATASE INCREASED [None]
  - VOMITING [None]
  - ATRIAL FIBRILLATION [None]
  - DIARRHOEA [None]
  - TROPONIN INCREASED [None]
  - LEFT VENTRICULAR DYSFUNCTION [None]
